FAERS Safety Report 20305137 (Version 1)
Quarter: 2022Q1

REPORT INFORMATION
  Report Type: Spontaneous
  Country: JP (occurrence: JP)
  Receive Date: 20220106
  Receipt Date: 20220106
  Transmission Date: 20220423
  Serious: Yes (Other)
  Sender: FDA-Public Use
  Company Number: JP-PFIZER INC-202101860881

PATIENT

DRUGS (2)
  1. SULTAMICILLIN TOSYLATE [Suspect]
     Active Substance: SULTAMICILLIN TOSYLATE
     Indication: Limb injury
     Dosage: UNK
     Route: 048
  2. VORICONAZOLE [Suspect]
     Active Substance: VORICONAZOLE
     Dosage: UNK

REACTIONS (3)
  - Enterocolitis bacterial [Unknown]
  - Product prescribing error [Unknown]
  - Off label use [Unknown]
